FAERS Safety Report 9815953 (Version 4)
Quarter: 2014Q1

REPORT INFORMATION
  Report Type: Report from Study
  Country: US (occurrence: US)
  Receive Date: 20140114
  Receipt Date: 20140305
  Transmission Date: 20141002
  Serious: Yes (Death, Hospitalization, Other)
  Sender: FDA-Public Use
  Company Number: US-PFIZER INC-2014008312

PATIENT
  Age: 71 Year
  Sex: Female
  Weight: 68.9 kg

DRUGS (13)
  1. DOXORUBICIN HCL [Suspect]
     Indication: PERIPHERAL NERVE SHEATH TUMOUR MALIGNANT
     Dosage: UNK, CYCLIC
     Dates: start: 20130821
  2. DOXORUBICIN HCL [Suspect]
     Dosage: 75 MG/M2, 132 MG, CONTINUOUS INFUSION, CYCLE 6
     Route: 041
     Dates: start: 20131204, end: 20131206
  3. ACETAMINOPHEN [Concomitant]
     Dosage: UNK
     Dates: start: 201302
  4. LORAZEPAM [Concomitant]
     Dosage: UNK
     Dates: start: 20130821
  5. AMIODARONE [Concomitant]
     Dosage: UNK
     Dates: start: 2013
  6. DABIGATRAN ETEXILATE [Concomitant]
     Dosage: UNK
     Dates: start: 201209
  7. FUROSEMID [Concomitant]
     Dosage: UNK
     Dates: start: 2013
  8. ONDANSETRON [Concomitant]
     Dosage: UNK
     Dates: start: 20130821
  9. POTASSIUM CHLORIDE [Concomitant]
     Dosage: UNK
     Dates: start: 2013
  10. SIMVASTATIN [Concomitant]
     Dosage: UNK
     Dates: start: 20130614
  11. NYSTATIN [Concomitant]
     Dosage: UNK
     Dates: start: 20130903
  12. DIPHENHYDRAMINE [Concomitant]
  13. ALUMINUM-MAGNESIUM - HYDROXIDE [Concomitant]

REACTIONS (5)
  - Lactic acidosis [Fatal]
  - Streptococcal bacteraemia [Recovered/Resolved]
  - Sepsis [Recovered/Resolved]
  - Cardiac failure congestive [Not Recovered/Not Resolved]
  - Atrial fibrillation [Recovered/Resolved]
